FAERS Safety Report 10204100 (Version 1)
Quarter: 2014Q2

REPORT INFORMATION
  Report Type: Spontaneous
  Country: JP (occurrence: JP)
  Receive Date: 20140529
  Receipt Date: 20140529
  Transmission Date: 20141212
  Serious: Yes (Death)
  Sender: FDA-Public Use
  Company Number: JP-NOVOPROD-411302

PATIENT
  Age: 80 Year
  Sex: Male

DRUGS (4)
  1. NOVOSEVEN HI [Suspect]
     Indication: HAEMORRHAGE
     Dosage: 40 MG, QD
     Route: 042
     Dates: start: 20140411, end: 20140511
  2. NOVOSEVEN HI [Suspect]
     Dosage: 20 MG, QD
     Route: 042
     Dates: start: 20140512, end: 20140515
  3. NOVOSEVEN HI [Suspect]
     Dosage: 10 MG, QD
     Route: 042
     Dates: start: 20140516, end: 20140518
  4. PREDONINE                          /00016201/ [Concomitant]
     Dosage: UNK
     Route: 048
     Dates: start: 20140411

REACTIONS (1)
  - Multi-organ failure [Fatal]
